FAERS Safety Report 9014646 (Version 4)
Quarter: 2013Q1

REPORT INFORMATION
  Report Type: Spontaneous
  Country: US (occurrence: US)
  Receive Date: 20130115
  Receipt Date: 20130318
  Transmission Date: 20140127
  Serious: Yes (Death, Hospitalization)
  Sender: FDA-Public Use
  Company Number: US-B.I. PHARMACEUTICALS,INC./RIDGEFIELD-2012-BI-04338BP

PATIENT
  Age: 77 Year
  Sex: Female
  Weight: 49.9 kg

DRUGS (13)
  1. PRADAXA [Suspect]
     Indication: ATRIAL FIBRILLATION
     Dosage: 300 MG
     Dates: start: 20110107, end: 20110108
  2. DIGOXIN [Concomitant]
     Route: 048
  3. VERAPAMIL SR [Concomitant]
     Dosage: 240 MG
  4. PREVACID [Concomitant]
     Dosage: 30 MG
  5. REGLAN [Concomitant]
     Dosage: 30 MG
  6. LORTAB [Concomitant]
     Indication: PAIN
     Route: 048
  7. LUNESTA [Concomitant]
     Indication: SLEEP DISORDER
     Dosage: 3 MG
  8. CRESTOR [Concomitant]
     Dosage: 20 MG
     Route: 048
  9. ASPIRIN [Concomitant]
     Dosage: 81 MG
  10. METOPROLOL [Concomitant]
     Dosage: 200 MG
     Route: 048
  11. IMDUR [Concomitant]
     Dosage: 30 MG
  12. MAVIK [Concomitant]
     Dosage: 4 MG
  13. MEPROBAMATE [Concomitant]

REACTIONS (5)
  - Septic shock [Fatal]
  - Upper gastrointestinal haemorrhage [Fatal]
  - Lower gastrointestinal haemorrhage [Fatal]
  - Dysphagia [Unknown]
  - Dyspnoea [Unknown]
